FAERS Safety Report 22535942 (Version 1)
Quarter: 2023Q2

REPORT INFORMATION
  Report Type: Spontaneous
  Country: CN (occurrence: CN)
  Receive Date: 20230608
  Receipt Date: 20230608
  Transmission Date: 20230721
  Serious: Yes (Other)
  Sender: FDA-Public Use
  Company Number: CN-002147023-NVSC2023CN129127

PATIENT
  Age: 65 Year
  Sex: Female
  Weight: 48 kg

DRUGS (1)
  1. TRAVOPROST [Suspect]
     Active Substance: TRAVOPROST
     Indication: Intraocular pressure increased
     Dosage: 1 DRP, QD (EVERY NIGHT BEFORE GOING TO BED)
     Route: 047
     Dates: start: 20230101, end: 20230601

REACTIONS (5)
  - Corneal epithelium defect [Unknown]
  - Keratitis [Recovering/Resolving]
  - Xerophthalmia [Recovering/Resolving]
  - Dry eye [Recovering/Resolving]
  - Foreign body sensation in eyes [Recovering/Resolving]

NARRATIVE: CASE EVENT DATE: 20230601
